FAERS Safety Report 10340040 (Version 1)
Quarter: 2014Q3

REPORT INFORMATION
  Report Type: Spontaneous
  Country: US (occurrence: None)
  Receive Date: 20140723
  Receipt Date: 20140723
  Transmission Date: 20150326
  Serious: Yes (Life-Threatening, Hospitalization, Disabling, Other)
  Sender: FDA-Public Use
  Company Number: None

PATIENT
  Age: 52 Year
  Sex: Male
  Weight: 88 kg

DRUGS (1)
  1. MAXALT [Suspect]
     Active Substance: RIZATRIPTAN BENZOATE
     Indication: MIGRAINE WITH AURA
     Dosage: 2 PILLS WITHIN 24 HRS?TWICE DAILY?TAKEN BY MOUTH
     Route: 048
     Dates: start: 20140528, end: 20140721

REACTIONS (4)
  - Colon gangrene [None]
  - Abdominal pain upper [None]
  - Gastrointestinal necrosis [None]
  - Small intestine gangrene [None]

NARRATIVE: CASE EVENT DATE: 20140603
